FAERS Safety Report 16630569 (Version 3)
Quarter: 2020Q1

REPORT INFORMATION
  Report Type: Report from Study
  Country: CO (occurrence: CO)
  Receive Date: 20190725
  Receipt Date: 20200117
  Transmission Date: 20200409
  Serious: Yes (Hospitalization, Other)
  Sender: FDA-Public Use
  Company Number: CO-ASTELLAS-2019US030058

PATIENT
  Age: 35 Year
  Sex: Female

DRUGS (4)
  1. GLUCOMET                           /00082702/ [Suspect]
     Active Substance: METFORMIN HYDROCHLORIDE
     Indication: BLINDNESS
     Route: 065
     Dates: start: 20190507
  2. GLUCOMET                           /00082702/ [Suspect]
     Active Substance: METFORMIN HYDROCHLORIDE
     Route: 065
  3. TACROLIMUS. [Suspect]
     Active Substance: TACROLIMUS
     Indication: RENAL TRANSPLANT
     Route: 048
     Dates: start: 20170829
  4. GLUCOMET                           /00082702/ [Suspect]
     Active Substance: METFORMIN HYDROCHLORIDE
     Route: 065
     Dates: start: 20190611

REACTIONS (16)
  - Haemoglobin decreased [Recovered/Resolved]
  - Agitation [Recovered/Resolved]
  - Blood potassium decreased [Unknown]
  - Blood calcium decreased [Unknown]
  - Blood sodium decreased [Unknown]
  - Abscess [Unknown]
  - Diarrhoea [Unknown]
  - Infection [Unknown]
  - Cyanosis [Unknown]
  - Optic neuritis [Recovering/Resolving]
  - Septic shock [Unknown]
  - Hypersomnia [Unknown]
  - Blindness transient [Unknown]
  - Pruritus [Unknown]
  - Hallucination [Unknown]
  - Intracranial pressure increased [Unknown]

NARRATIVE: CASE EVENT DATE: 20190204
